FAERS Safety Report 19292133 (Version 14)
Quarter: 2022Q3

REPORT INFORMATION
  Report Type: Spontaneous
  Country: CA (occurrence: CA)
  Receive Date: 20210524
  Receipt Date: 20220928
  Transmission Date: 20221026
  Serious: Yes (Other)
  Sender: FDA-Public Use
  Company Number: CA-CELLTRION INC.-2021CA005305

PATIENT

DRUGS (14)
  1. INFLECTRA [Suspect]
     Active Substance: INFLIXIMAB-DYYB
     Indication: Crohn^s disease
     Dosage: 400 MG AT 0, 2, 6, THEN EVERY 8 WEEKS
     Route: 041
     Dates: start: 20210331, end: 20220105
  2. INFLECTRA [Suspect]
     Active Substance: INFLIXIMAB-DYYB
     Dosage: 400 MG AT 0, 2, 6, THEN EVERY 8 WEEKS
     Route: 041
     Dates: start: 20210414
  3. INFLECTRA [Suspect]
     Active Substance: INFLIXIMAB-DYYB
     Dosage: 400 MG AT 0, 2, 6, THEN EVERY 8 WEEKS
     Route: 041
     Dates: start: 20210512
  4. INFLECTRA [Suspect]
     Active Substance: INFLIXIMAB-DYYB
     Dosage: 400 MG AT 0, 2, 6, THEN EVERY 8 WEEKS
     Route: 041
     Dates: start: 20210707
  5. INFLECTRA [Suspect]
     Active Substance: INFLIXIMAB-DYYB
     Dosage: 400 MG AT 0, 2, 6, THEN EVERY 8 WEEKS
     Route: 041
     Dates: start: 20210915
  6. INFLECTRA [Suspect]
     Active Substance: INFLIXIMAB-DYYB
     Dosage: 400 MG AT 0, 2, 6, THEN EVERY 8 WEEKS
     Route: 041
     Dates: start: 20211110
  7. INFLECTRA [Suspect]
     Active Substance: INFLIXIMAB-DYYB
     Dosage: 400 MG AT 0, 2, 6, THEN EVERY 8 WEEKS
     Route: 041
     Dates: start: 20220105
  8. INFLECTRA [Suspect]
     Active Substance: INFLIXIMAB-DYYB
     Dosage: 400 MG AT 0, 2, 6, THEN EVERY 8 WEEKS (SUPPOSED TO RECEIVE 10 MG/KG)
     Route: 041
     Dates: start: 20220330
  9. INFLECTRA [Suspect]
     Active Substance: INFLIXIMAB-DYYB
     Dosage: 10 MG/KG, EVERY 8 WEEK
     Route: 042
     Dates: start: 20220330, end: 20220419
  10. INFLECTRA [Suspect]
     Active Substance: INFLIXIMAB-DYYB
     Dosage: 10 MG/KG, EVERY 8 WEEK (RECEIVED 200 MG INSTEAD OF 300 MG)
     Route: 041
     Dates: start: 20220419
  11. INFLECTRA [Suspect]
     Active Substance: INFLIXIMAB-DYYB
     Dosage: 600 MG, EVERY 8 WEEK
     Route: 042
     Dates: start: 20220525
  12. INFLECTRA [Suspect]
     Active Substance: INFLIXIMAB-DYYB
     Dosage: 600 MG EVERY 8 WEEKS
     Route: 042
     Dates: start: 20220720
  13. INFLECTRA [Suspect]
     Active Substance: INFLIXIMAB-DYYB
     Dosage: 600 MG EVERY 8 WEEKS
     Route: 042
     Dates: start: 20220914
  14. METHOTREXATE [Concomitant]
     Active Substance: METHOTREXATE
     Dosage: 1 DF

REACTIONS (15)
  - Diverticulitis [Recovered/Resolved]
  - Condition aggravated [Not Recovered/Not Resolved]
  - Pyoderma gangrenosum [Unknown]
  - Uveitis [Unknown]
  - Blood pressure increased [Not Recovered/Not Resolved]
  - Intestinal operation [Unknown]
  - Weight decreased [Not Recovered/Not Resolved]
  - Off label use [Unknown]
  - Incorrect dose administered [Unknown]
  - Inappropriate schedule of product administration [Unknown]
  - Anal fissure [Unknown]
  - Eye inflammation [Unknown]
  - Gout [Unknown]
  - Gait disturbance [Not Recovered/Not Resolved]
  - Arthralgia [Unknown]

NARRATIVE: CASE EVENT DATE: 20210331
